FAERS Safety Report 4697252-X (Version None)
Quarter: 2005Q2

REPORT INFORMATION
  Report Type: 
  Country: None (occurrence: None)
  Receive Date: 20050622
  Receipt Date: 20050615
  Transmission Date: 20051028
  Serious: Yes (Other)
  Sender: FDA-Public Use
  Company Number: GB-BRISTOL-MYERS SQUIBB COMPANY-13004668

PATIENT
  Age: 34 Year
  Sex: Male

DRUGS (9)
  1. DIDANOSINE [Suspect]
     Indication: HIV INFECTION
  2. STAVUDINE [Suspect]
     Indication: HIV INFECTION
  3. EFAVIRENZ [Suspect]
     Indication: HIV INFECTION
  4. VIRAMUNE [Suspect]
     Indication: HIV INFECTION
  5. LAMIVUDINE [Suspect]
  6. ABACAVIR [Suspect]
  7. NELFINAVIR [Concomitant]
  8. KALETRA [Concomitant]
  9. TENOFOVIR DISOPROXIL FUMARATE [Concomitant]

REACTIONS (4)
  - DRUG HYPERSENSITIVITY [None]
  - HEPATITIS [None]
  - HEPATITIS B [None]
  - RASH [None]
